FAERS Safety Report 24879543 (Version 1)
Quarter: 2025Q1

REPORT INFORMATION
  Report Type: Spontaneous
  Country: US (occurrence: US)
  Receive Date: 20250123
  Receipt Date: 20250123
  Transmission Date: 20250409
  Serious: No
  Sender: CATALYST PHARMA
  Company Number: US-CATALYST PHARMACEUTICALS, INC-US-CATA-24-01384

PATIENT
  Age: 58 Year
  Sex: Female
  Weight: 65.76 kg

DRUGS (2)
  1. FIRDAPSE [Suspect]
     Active Substance: AMIFAMPRIDINE PHOSPHATE
     Indication: Myasthenia gravis
     Dosage: 1 TABLET TWO TIMES PER DAY
     Route: 048
     Dates: start: 20241030, end: 20241120
  2. FIRDAPSE [Suspect]
     Active Substance: AMIFAMPRIDINE PHOSPHATE
     Dosage: 2 TABLETS THREE TIMES PER DAY
     Route: 048
     Dates: start: 20241120

REACTIONS (1)
  - Wrist surgery [Recovered/Resolved]

NARRATIVE: CASE EVENT DATE: 20241120
